FAERS Safety Report 6050713-3 (Version None)
Quarter: 2009Q1

REPORT INFORMATION
  Report Type: 
  Country: None (occurrence: None)
  Receive Date: 20090126
  Receipt Date: 20090115
  Transmission Date: 20090719
  Serious: Yes (Other)
  Sender: FDA-Public Use
  Company Number: BR-PFIZER INC-2007105830

PATIENT

DRUGS (4)
  1. CHAMPIX [Suspect]
     Indication: SMOKING CESSATION THERAPY
     Dosage: UNK
     Route: 048
     Dates: start: 20070101, end: 20080101
  2. RIVOTRIL [Concomitant]
     Dosage: UNK
     Route: 048
  3. PAROXETINE HCL [Concomitant]
     Dosage: UNK
     Route: 048
     Dates: start: 20070101
  4. NICOTINE [Concomitant]
     Dosage: UNK
     Dates: end: 20080101

REACTIONS (3)
  - DYSPHONIA [None]
  - LARYNGEAL CANCER [None]
  - OBSTRUCTIVE AIRWAYS DISORDER [None]
